FAERS Safety Report 7789607-1 (Version None)
Quarter: 2011Q3

REPORT INFORMATION
  Report Type: 
  Country: None (occurrence: None)
  Receive Date: 20110930
  Receipt Date: 20110926
  Transmission Date: 20111222
  Serious: Yes (Other)
  Sender: FDA-Public Use
  Company Number: LU-PFIZER INC-2011228098

PATIENT
  Age: 85 Year
  Sex: Male

DRUGS (4)
  1. COBRA ANTIVENOM [Concomitant]
  2. MORPHINAN DERIVATIVES [Suspect]
  3. ZYVOX [Suspect]
     Indication: INFECTION
  4. GALENIC /PARACETAMOL/ORPHENADRINE/ [Concomitant]

REACTIONS (2)
  - RESPIRATORY DEPRESSION [None]
  - DRUG INTERACTION [None]
